FAERS Safety Report 13343783 (Version 2)
Quarter: 2017Q2

REPORT INFORMATION
  Report Type: Spontaneous
  Country: US (occurrence: US)
  Receive Date: 20170316
  Receipt Date: 20170426
  Transmission Date: 20170830
  Serious: Yes (Other)
  Sender: FDA-Public Use
  Company Number: US-LUNDBECK-DKLU2027668

PATIENT
  Age: 66 Year
  Sex: Male

DRUGS (3)
  1. NORTHERA [Suspect]
     Active Substance: DROXIDOPA
     Indication: AUTONOMIC NEUROPATHY
     Dosage: GIVE 2 100 MG CAPS WITH 1 300  MG CAP FOR TOTAL OF 500 MG TID
     Route: 048
     Dates: start: 20170210
  2. NORTHERA [Suspect]
     Active Substance: DROXIDOPA
     Indication: ORTHOSTATIC HYPOTENSION
     Route: 048
     Dates: end: 20170210
  3. NORTHERA [Suspect]
     Active Substance: DROXIDOPA
     Dosage: GIVE 2 100 MG CAPS WITH 1 300  MG CAP FOR TOTAL OF 500 MG TID
     Route: 048
     Dates: start: 20170210

REACTIONS (3)
  - Coronary artery stenosis [Recovering/Resolving]
  - Feeling abnormal [Unknown]
  - Hypertension [Unknown]

NARRATIVE: CASE EVENT DATE: 20170210
